FAERS Safety Report 7444590-3 (Version None)
Quarter: 2011Q2

REPORT INFORMATION
  Report Type: 
  Country: None (occurrence: None)
  Receive Date: 20110419
  Receipt Date: 20110408
  Transmission Date: 20111010
  Serious: Yes (Death, Other)
  Sender: FDA-Public Use
  Company Number: 115467

PATIENT
  Age: 17 Year
  Sex: Male

DRUGS (1)
  1. BUPRENORPHINE HCL [Suspect]

REACTIONS (14)
  - CYANOSIS [None]
  - INTENTIONAL DRUG MISUSE [None]
  - VISCERAL CONGESTION [None]
  - INCORRECT ROUTE OF DRUG ADMINISTRATION [None]
  - MEDICATION ERROR [None]
  - POISONING [None]
  - ALCOHOL USE [None]
  - ASPHYXIA [None]
  - PULMONARY CONGESTION [None]
  - PULMONARY ALVEOLAR HAEMORRHAGE [None]
  - RESPIRATORY DEPRESSION [None]
  - OVERDOSE [None]
  - WRONG TECHNIQUE IN DRUG USAGE PROCESS [None]
  - PULMONARY OEDEMA [None]
